FAERS Safety Report 14426157 (Version 1)
Quarter: 2018Q1

REPORT INFORMATION
  Report Type: Spontaneous
  Country: JP (occurrence: JP)
  Receive Date: 20180123
  Receipt Date: 20180123
  Transmission Date: 20180509
  Serious: Yes (Hospitalization)
  Sender: FDA-Public Use
  Company Number: JP-PFIZER INC-2017539074

PATIENT
  Age: 7 Year
  Sex: Female
  Weight: 16 kg

DRUGS (1)
  1. GENOTROPIN [Suspect]
     Active Substance: SOMATROPIN
     Indication: DWARFISM
     Dosage: 0.6 MG, 1X/DAY
     Route: 058
     Dates: start: 20171206

REACTIONS (2)
  - Henoch-Schonlein purpura [Recovered/Resolved]
  - Streptococcal infection [Unknown]

NARRATIVE: CASE EVENT DATE: 2017
